FAERS Safety Report 5215636-8 (Version None)
Quarter: 2007Q1

REPORT INFORMATION
  Report Type: 
  Country: None (occurrence: None)
  Receive Date: 20070123
  Receipt Date: 20070116
  Transmission Date: 20070707
  Serious: Yes (Death, Hospitalization, Other)
  Sender: FDA-Public Use
  Company Number: PHBS2007DE01076

PATIENT
  Sex: Female

DRUGS (8)
  1. CYCLOSPORINE [Suspect]
     Indication: STEM CELL TRANSPLANT
     Dosage: 3 MG/KG/D
     Route: 065
  2. SULFAMETHOXAZOLE AND TRIMETHOPRIM [Suspect]
     Route: 065
  3. LEVOFLOXACIN [Suspect]
     Route: 065
  4. AMOXICILLIN + CLAVULANIC ACID [Suspect]
     Route: 065
  5. METHOTREXATE [Concomitant]
     Indication: STEM CELL TRANSPLANT
     Dosage: 10 MG/M2
     Route: 065
  6. MELPHALAN [Concomitant]
     Indication: STEM CELL TRANSPLANT
     Dosage: 140 MG/M2
     Route: 065
  7. FLUDARABINE [Concomitant]
     Indication: STEM CELL TRANSPLANT
     Dosage: 30 MG/M2
     Route: 065
  8. ANTITHYMOCYTE IMMUNOGLOBULIN [Concomitant]
     Dosage: 10 MG/KG/D
     Route: 065

REACTIONS (12)
  - BLISTER [None]
  - CONJUNCTIVITIS [None]
  - EPIDERMOLYSIS [None]
  - ERYTHEMA [None]
  - GRAFT VERSUS HOST DISEASE [None]
  - HYPERAEMIA [None]
  - MALIGNANT NEOPLASM PROGRESSION [None]
  - MOUTH ULCERATION [None]
  - MULTI-ORGAN FAILURE [None]
  - RASH MACULO-PAPULAR [None]
  - SEPSIS [None]
  - TOXIC EPIDERMAL NECROLYSIS [None]
